FAERS Safety Report 25718806 (Version 1)
Quarter: 2025Q3

REPORT INFORMATION
  Report Type: Spontaneous
  Country: US (occurrence: US)
  Receive Date: 20250823
  Receipt Date: 20250823
  Transmission Date: 20251021
  Serious: Yes (Hospitalization, Other)
  Sender: ELI LILLY AND COMPANY
  Company Number: US-ELI_LILLY_AND_COMPANY-US202508011739

PATIENT
  Age: 49 Year
  Sex: Female

DRUGS (2)
  1. TRULICITY [Suspect]
     Active Substance: DULAGLUTIDE
     Indication: Product used for unknown indication
     Route: 065
     Dates: start: 20171202, end: 20200226
  2. OZEMPIC [Suspect]
     Active Substance: SEMAGLUTIDE
     Indication: Product used for unknown indication
     Route: 065
     Dates: start: 20220816, end: 20230605

REACTIONS (25)
  - Hypoglycaemia [Unknown]
  - Chest pain [Unknown]
  - Abdominal pain [Unknown]
  - Nausea [Unknown]
  - Vomiting [Unknown]
  - Abdominal pain upper [Unknown]
  - Hiatus hernia [Unknown]
  - Hyperglycaemia [Unknown]
  - Leukocytosis [Unknown]
  - Hypovolaemia [Unknown]
  - Hyponatraemia [Unknown]
  - Sepsis [Unknown]
  - Urinary tract infection [Unknown]
  - Syncope [Unknown]
  - Dehydration [Unknown]
  - Gastritis [Unknown]
  - Type 2 diabetes mellitus [Unknown]
  - Cystitis [Unknown]
  - Asthenia [Unknown]
  - Impaired gastric emptying [Unknown]
  - Neuropathy peripheral [Unknown]
  - Tachycardia [Unknown]
  - Lactic acidosis [Unknown]
  - Oesophagitis ulcerative [Unknown]
  - Reflux gastritis [Unknown]
